FAERS Safety Report 10024125 (Version 2)
Quarter: 2014Q2

REPORT INFORMATION
  Report Type: Spontaneous
  Country: US (occurrence: US)
  Receive Date: 20140320
  Receipt Date: 20140409
  Transmission Date: 20141212
  Serious: No
  Sender: FDA-Public Use
  Company Number: US-PFIZER INC-2014078419

PATIENT
  Age: 64 Year
  Sex: Male
  Weight: 79.4 kg

DRUGS (1)
  1. RAMIPRIL [Suspect]
     Indication: HYPERTENSION
     Dosage: 20 MG (10MG X 2), DAILY

REACTIONS (1)
  - Drug ineffective [Unknown]
